FAERS Safety Report 13703529 (Version 1)
Quarter: 2017Q2

REPORT INFORMATION
  Report Type: Spontaneous
  Country: US (occurrence: US)
  Receive Date: 20170629
  Receipt Date: 20170629
  Transmission Date: 20170830
  Serious: Yes (Other)
  Sender: FDA-Public Use
  Company Number: US-PFIZER INC-2017279952

PATIENT
  Sex: Female

DRUGS (1)
  1. XELJANZ [Suspect]
     Active Substance: TOFACITINIB CITRATE
     Dosage: 5 MG, 2X/DAY

REACTIONS (22)
  - Asthenia [Unknown]
  - Urinary tract infection [Unknown]
  - Hyperaesthesia [Unknown]
  - Pain [Unknown]
  - Limb discomfort [Not Recovered/Not Resolved]
  - Fatigue [Unknown]
  - Cystitis [Unknown]
  - Arthralgia [Unknown]
  - Hypokinesia [Unknown]
  - Joint swelling [Unknown]
  - Pain in extremity [Unknown]
  - Depressed mood [Unknown]
  - Cerebrovascular accident [Unknown]
  - Dyslexia [Unknown]
  - Photosensitivity reaction [Unknown]
  - Anxiety [Unknown]
  - Synovitis [Unknown]
  - Grip strength decreased [Unknown]
  - Insomnia [Unknown]
  - Depression [Unknown]
  - Gait disturbance [Unknown]
  - Epistaxis [Unknown]
